FAERS Safety Report 20477462 (Version 2)
Quarter: 2024Q2

REPORT INFORMATION
  Report Type: Spontaneous
  Country: PL (occurrence: PL)
  Receive Date: 20220216
  Receipt Date: 20240517
  Transmission Date: 20240716
  Serious: Yes (Life-Threatening, Hospitalization, Other)
  Sender: FDA-Public Use
  Company Number: PL-Accord-252187

PATIENT
  Age: 29 Year
  Sex: Female

DRUGS (10)
  1. ONDANSETRON [Interacting]
     Active Substance: ONDANSETRON
     Indication: Prophylaxis of nausea and vomiting
     Dosage: 16 MILLIGRAM, ONCE A DAY
     Route: 048
  2. BUPROPION [Interacting]
     Active Substance: BUPROPION
     Indication: Obesity
     Dosage: 150 MILLIGRAM, ONCE A DAY (FIRST 6 DAYS AT A DOSE OF 150 MG / DAY, THEN 300 MG / DAY)
     Route: 065
  3. BUPROPION [Interacting]
     Active Substance: BUPROPION
     Dosage: 300 MILLIGRAM, ONCE A DAY
     Route: 065
  4. BUPROPION HYDROCHLORIDE\NALTREXONE HYDROCHLORIDE [Interacting]
     Active Substance: BUPROPION HYDROCHLORIDE\NALTREXONE HYDROCHLORIDE
     Indication: Obesity
     Dosage: 2 DOSAGE FORM, ONCE A DAY (2 TABLETS CONTAINING 8 MG OF NALTREXONE AND 90 MG OF BUPROPION PER DAY, A
     Route: 048
  5. BUPROPION HYDROCHLORIDE\NALTREXONE HYDROCHLORIDE [Interacting]
     Active Substance: BUPROPION HYDROCHLORIDE\NALTREXONE HYDROCHLORIDE
     Dosage: 1 DOSAGE FORM, ONCE A DAY (8/90 MILLIGRAM, QD)
     Route: 048
  6. NALTREXONE HYDROCHLORIDE [Suspect]
     Active Substance: NALTREXONE HYDROCHLORIDE
     Indication: Obesity
     Dosage: 8 MILLIGRAM, ONCE A DAY
     Route: 065
  7. NALTREXONE HYDROCHLORIDE [Suspect]
     Active Substance: NALTREXONE HYDROCHLORIDE
     Indication: Prophylaxis
  8. SEMAGLUTIDE [Interacting]
     Active Substance: SEMAGLUTIDE
     Indication: Obesity
     Dosage: 0.5 MILLIGRAM, EVERY WEEK (0.5 MG SUBCUTANEOUSLY 1 * WEEK)
     Route: 058
  9. SEMAGLUTIDE [Interacting]
     Active Substance: SEMAGLUTIDE
     Indication: Prophylaxis
  10. VORTIOXETINE [Interacting]
     Active Substance: VORTIOXETINE
     Indication: Obesity
     Dosage: 10 MILLIGRAM, ONCE A DAY  (AFTER THE LAST MEAL)
     Route: 048

REACTIONS (14)
  - Renal failure [Recovered/Resolved]
  - Serotonin syndrome [Recovered/Resolved]
  - Myopathy [Recovered/Resolved]
  - Myoglobinuria [Recovered/Resolved]
  - Muscle spasms [Recovered/Resolved]
  - Headache [Recovered/Resolved]
  - Rhabdomyolysis [Recovering/Resolving]
  - Urinary retention [Recovering/Resolving]
  - Body temperature increased [Recovered/Resolved]
  - Chills [Recovered/Resolved]
  - Myalgia [Recovered/Resolved]
  - Hyperhidrosis [Recovered/Resolved]
  - Drug interaction [Unknown]
  - Urine output decreased [Recovered/Resolved]
